FAERS Safety Report 8311638-3 (Version None)
Quarter: 2012Q2

REPORT INFORMATION
  Report Type: 
  Country: None (occurrence: None)
  Receive Date: 20120425
  Receipt Date: 20120424
  Transmission Date: 20120825
  Serious: No
  Sender: FDA-Public Use
  Company Number: US-BAYER-2012-040241

PATIENT
  Sex: Male

DRUGS (3)
  1. STAXYN [Suspect]
     Indication: BLOOD TESTOSTERONE DECREASED
     Dosage: UNK
     Dates: start: 20120416, end: 20120420
  2. TESTOSTERONE [Concomitant]
  3. STAXYN [Suspect]
     Indication: ERECTILE DYSFUNCTION

REACTIONS (1)
  - THERAPEUTIC RESPONSE DECREASED [None]
